FAERS Safety Report 10257925 (Version 2)
Quarter: 2019Q3

REPORT INFORMATION
  Report Type: Spontaneous
  Country: US (occurrence: US)
  Receive Date: 20140625
  Receipt Date: 20190807
  Transmission Date: 20191004
  Serious: No
  Sender: FDA-Public Use
  Company Number: US-PFIZER INC-2014170535

PATIENT
  Sex: Female

DRUGS (4)
  1. MORPHINE SULFATE. [Suspect]
     Active Substance: MORPHINE SULFATE
     Dosage: UNK
  2. CORTISONE [Suspect]
     Active Substance: CORTISONE
     Dosage: UNK
  3. BETADINE [Suspect]
     Active Substance: POVIDONE-IODINE
     Dosage: UNK
  4. IODINE. [Suspect]
     Active Substance: IODINE
     Dosage: UNK

REACTIONS (1)
  - Drug hypersensitivity [Unknown]
